FAERS Safety Report 17093014 (Version 1)
Quarter: 2019Q4

REPORT INFORMATION
  Report Type: Spontaneous
  Country: US (occurrence: US)
  Receive Date: 20191129
  Receipt Date: 20191129
  Transmission Date: 20200122
  Serious: No
  Sender: FDA-Public Use
  Company Number: US-APOTEX-2019AP011445

PATIENT
  Sex: Female

DRUGS (1)
  1. NICOTINE. [Suspect]
     Active Substance: NICOTINE
     Indication: SMOKING CESSATION THERAPY
     Dosage: UNK
     Route: 065
     Dates: start: 20190401

REACTIONS (4)
  - Heart rate increased [Unknown]
  - Headache [Unknown]
  - Thirst [Unknown]
  - Hypertension [Unknown]

NARRATIVE: CASE EVENT DATE: 20190401
